FAERS Safety Report 6731713-4 (Version None)
Quarter: 2010Q2

REPORT INFORMATION
  Report Type: 
  Country: None (occurrence: None)
  Receive Date: 20100518
  Receipt Date: 20100518
  Transmission Date: 20101027
  Serious: No
  Sender: FDA-Public Use
  Company Number: None

PATIENT
  Sex: Female
  Weight: 15.2 kg

DRUGS (1)
  1. VIGABATRIN [Suspect]
     Indication: LENNOX-GASTAUT SYNDROME
     Dosage: 250 MG/ 500 MG AM, PM PO
     Route: 048
     Dates: start: 20091105, end: 20091231

REACTIONS (2)
  - DYSKINESIA [None]
  - DYSTONIA [None]
